FAERS Safety Report 20992125 (Version 1)
Quarter: 2022Q2

REPORT INFORMATION
  Report Type: Spontaneous
  Country: US (occurrence: US)
  Receive Date: 20220622
  Receipt Date: 20220622
  Transmission Date: 20220721
  Serious: No
  Sender: FDA-Public Use
  Company Number: US-Accord-226516

PATIENT
  Age: 78 Year
  Sex: Female
  Weight: 63.50 kg

DRUGS (2)
  1. CLONAZEPAM [Suspect]
     Active Substance: CLONAZEPAM
     Indication: Sleep disorder
     Dosage: FEW YEARS AGO, ONCE A DAY AS NEEDED FOR SLEEP
     Route: 048
  2. BENADRYL [Suspect]
     Active Substance: DIPHENHYDRAMINE HYDROCHLORIDE
     Indication: Sleep disorder

REACTIONS (2)
  - Amnesia [Not Recovered/Not Resolved]
  - Wrong technique in product usage process [Unknown]
